FAERS Safety Report 9354469 (Version 2)
Quarter: 2013Q2

REPORT INFORMATION
  Report Type: Spontaneous
  Country: US (occurrence: US)
  Receive Date: 20130618
  Receipt Date: 20130618
  Transmission Date: 20140414
  Serious: Yes (Hospitalization)
  Sender: FDA-Public Use
  Company Number: US-ELI_LILLY_AND_COMPANY-US_000745688

PATIENT
  Age: 87 Year
  Sex: Female

DRUGS (2)
  1. VANCOMYCIN HYDROCHLORIDE [Suspect]
     Indication: URINARY TRACT INFECTION
     Dosage: UNK, UNKNOWN
  2. PHENYTOIN [Concomitant]
     Indication: CONVULSION PROPHYLAXIS
     Dosage: UNK, UNKNOWN

REACTIONS (2)
  - Immune system disorder [Recovered/Resolved]
  - Linear IgA disease [None]
